FAERS Safety Report 4412928-7 (Version None)
Quarter: 2004Q3

REPORT INFORMATION
  Report Type: 
  Country: None (occurrence: None)
  Receive Date: 20040728
  Receipt Date: 20040720
  Transmission Date: 20050211
  Serious: Yes (Other)
  Sender: FDA-Public Use
  Company Number: 04-07-1036

PATIENT
  Age: 73 Year
  Sex: Male

DRUGS (15)
  1. NITROFURANTOIN [Suspect]
     Dosage: 50 MG QE
  2. FLUCONAZOLE [Suspect]
     Indication: ONYCHOMYCOSIS
     Dosage: 150 MG WK
  3. TERAZOSIN HCL [Concomitant]
  4. FLUTICASONE NASAL [Concomitant]
  5. DIPHENHYDRAMINE HCL [Concomitant]
  6. IBUPROFEN 400-1200MG [Concomitant]
  7. FLUOCINONIDE INTMENT [Concomitant]
  8. CENTRUL SILVER [Concomitant]
  9. VITAMIN E [Concomitant]
  10. CALCIUM CITRATE 630MG [Concomitant]
  11. VITAMIN D 400 [Concomitant]
  12. ASPIRIN [Concomitant]
  13. NINTROFURANTOIN 50 MG [Concomitant]
  14. POLYCARBOPHIL CALCIUM 500 MG [Concomitant]
  15. DOCUSATE SODIUM 400 MG [Concomitant]

REACTIONS (12)
  - ALANINE AMINOTRANSFERASE INCREASED [None]
  - ASPARTATE AMINOTRANSFERASE INCREASED [None]
  - BRONCHITIS ACUTE [None]
  - DYSPNOEA EXERTIONAL [None]
  - FATIGUE [None]
  - HEPATOTOXICITY [None]
  - INGUINAL HERNIA [None]
  - LIVER FUNCTION TEST ABNORMAL [None]
  - PLEURITIC PAIN [None]
  - PRODUCTIVE COUGH [None]
  - PULMONARY TOXICITY [None]
  - TRACHEAL PAIN [None]
